FAERS Safety Report 7769634-0 (Version None)
Quarter: 2011Q3

REPORT INFORMATION
  Report Type: 
  Country: None (occurrence: None)
  Receive Date: 20110922
  Receipt Date: 20110517
  Transmission Date: 20111222
  Serious: No
  Sender: FDA-Public Use
  Company Number: US-ASTRAZENECA-2011SE15052

PATIENT
  Age: 50 Year
  Sex: Female
  Weight: 90.7 kg

DRUGS (5)
  1. SEROQUEL [Suspect]
     Indication: BIPOLAR DISORDER
     Route: 048
     Dates: start: 20090101, end: 20100901
  2. SEROQUEL [Suspect]
     Route: 048
  3. SEROQUEL [Suspect]
     Route: 048
     Dates: start: 20110101, end: 20110315
  4. LEVOTHYROXINE SODIUM [Concomitant]
  5. SEROQUEL [Suspect]
     Route: 048
     Dates: start: 20100901, end: 20110101

REACTIONS (6)
  - MALAISE [None]
  - TOOTH EXTRACTION [None]
  - NASOPHARYNGITIS [None]
  - DRUG DOSE OMISSION [None]
  - INSOMNIA [None]
  - WEIGHT INCREASED [None]
